FAERS Safety Report 9420051 (Version 1)
Quarter: 2013Q3

REPORT INFORMATION
  Report Type: Spontaneous
  Country: US (occurrence: None)
  Receive Date: 20130724
  Receipt Date: 20130724
  Transmission Date: 20140515
  Serious: Yes (Hospitalization)
  Sender: FDA-Public Use
  Company Number: None

PATIENT
  Age: 90 Year
  Sex: Female
  Weight: 38 kg

DRUGS (16)
  1. MIRTAZAPINE [Suspect]
     Indication: DEPRESSION
     Dosage: 3-4 DAY ?15 MG QHS PO
     Route: 048
  2. ASCORBIC ACID [Concomitant]
  3. ASPIRIN [Concomitant]
  4. DIGOXIN [Concomitant]
  5. FERROUS SULFATE [Concomitant]
  6. HYDROCODONE/ACETAMINOPHEN [Concomitant]
  7. LACTASE [Concomitant]
  8. LACTOBACILLUS [Concomitant]
  9. LEVOTHYROXINE [Concomitant]
  10. MECLIZINE [Concomitant]
  11. METOPROLOL XL [Concomitant]
  12. PANTOPRAZOLE [Concomitant]
  13. MULTIVITAMIN [Concomitant]
  14. CHOLECALCIFEROL [Concomitant]
  15. DIAZEPAM [Concomitant]
  16. BELLADONNA WITH PHENOBARBITAL [Concomitant]

REACTIONS (4)
  - Serotonin syndrome [None]
  - Lethargy [None]
  - Hallucination, visual [None]
  - Mental status changes [None]
